FAERS Safety Report 22594201 (Version 1)
Quarter: 2023Q2

REPORT INFORMATION
  Report Type: Spontaneous
  Country: US (occurrence: US)
  Receive Date: 20230613
  Receipt Date: 20230613
  Transmission Date: 20230721
  Serious: Yes (Other)
  Sender: FDA-Public Use
  Company Number: US-STERISCIENCE B.V.-2023-ST-001469

PATIENT
  Age: 32 Year
  Sex: Female

DRUGS (2)
  1. LABETALOL [Suspect]
     Active Substance: LABETALOL\LABETALOL HYDROCHLORIDE
     Indication: Hypertension
     Dosage: UNK UNK, QD, DOSE FLUCTUATED BETWEEN 50 MG AND 200MG DAILY
     Route: 065
  2. BUPRENORPHINE [Suspect]
     Active Substance: BUPRENORPHINE
     Indication: Drug use disorder
     Dosage: UNK UNK, QD, RECEIVED 4 MG, WHICH WAS INCREASED TO 6 MG DAILY
     Route: 065

REACTIONS (2)
  - False positive investigation result [Unknown]
  - Maternal exposure during pregnancy [Unknown]
